FAERS Safety Report 9169996 (Version 1)
Quarter: 2013Q1

REPORT INFORMATION
  Report Type: Spontaneous
  Country: US (occurrence: None)
  Receive Date: 20130307
  Receipt Date: 20130307
  Transmission Date: 20140127
  Serious: Yes (Hospitalization)
  Sender: FDA-Public Use
  Company Number: 2013CT000018

PATIENT
  Sex: Female

DRUGS (1)
  1. KORLYM [Suspect]
     Indication: CUSHING^S SYNDROME
     Dates: start: 201205, end: 201206

REACTIONS (5)
  - Hepatic steatosis [None]
  - Haemorrhage [None]
  - Neurogenic bowel [None]
  - Gastrointestinal disorder [None]
  - Weight decreased [None]
